FAERS Safety Report 9216358 (Version 1)
Quarter: 2013Q2

REPORT INFORMATION
  Report Type: Spontaneous
  Country: US (occurrence: US)
  Receive Date: 20130408
  Receipt Date: 20130408
  Transmission Date: 20140414
  Serious: No
  Sender: FDA-Public Use
  Company Number: PHEH2013US007805

PATIENT
  Age: 60 Year
  Sex: Female
  Weight: 48.98 kg

DRUGS (9)
  1. TASIGNA [Suspect]
     Indication: CHRONIC MYELOID LEUKAEMIA
     Dosage: 400 MG, BID
     Route: 048
  2. TASIGNA [Suspect]
     Dosage: 400 MG, BID
     Route: 048
     Dates: start: 20130330
  3. CYMBALTA [Concomitant]
     Dosage: 20 MG
     Route: 048
  4. AMLODIPINE [Concomitant]
     Dosage: 10 MG
     Route: 048
  5. TRAZODONE [Concomitant]
     Dosage: 50 MG
     Route: 048
  6. SIMVASTATIN [Concomitant]
     Dosage: 10 MG
  7. MECLIZINE [Concomitant]
     Dosage: 12.5 MG
     Route: 048
  8. SEROQUEL [Concomitant]
     Dosage: 100 MG
     Route: 048
  9. FLEXERIL [Concomitant]
     Dosage: 5 MG

REACTIONS (5)
  - Rash [Recovered/Resolved]
  - Decreased appetite [Unknown]
  - Fatigue [Unknown]
  - Tinnitus [Unknown]
  - Dizziness [Unknown]
